FAERS Safety Report 25582434 (Version 2)
Quarter: 2025Q4

REPORT INFORMATION
  Report Type: Report from Study
  Country: IN (occurrence: IN)
  Receive Date: 20250720
  Receipt Date: 20251015
  Transmission Date: 20260118
  Serious: Yes (Other)
  Sender: JOHNSON AND JOHNSON
  Company Number: IN-JNJFOC-20250715229

PATIENT
  Age: 67 Year
  Sex: Female
  Weight: 59.9 kg

DRUGS (12)
  1. DARZALEX FASPRO [Suspect]
     Active Substance: DARATUMUMAB\HYALURONIDASE-FIHJ
     Indication: Plasma cell myeloma
     Route: 058
     Dates: start: 20250520, end: 20250520
  2. LEN [Concomitant]
     Indication: Product used for unknown indication
  3. PAN D [DOMPERIDONE;PANTOPRAZOLE] [Concomitant]
     Indication: Product used for unknown indication
  4. ACYCLOVIR [Concomitant]
     Active Substance: ACYCLOVIR
     Indication: Product used for unknown indication
  5. ECOSPIRIN AV 150 [Concomitant]
     Indication: Product used for unknown indication
  6. SEPTRAN DS [Concomitant]
     Indication: Product used for unknown indication
  7. DUPHALAC [Concomitant]
     Active Substance: LACTULOSE
     Indication: Product used for unknown indication
     Dosage: 1 HS
  8. SHELCAL M [Concomitant]
     Indication: Product used for unknown indication
  9. NEUROBION FORTE [CALCIUM PANTOTHENATE;CYANOCOBALAMIN;NICOTINAMIDE;PYRI [Concomitant]
     Indication: Product used for unknown indication
  10. CREMAFFIN [Concomitant]
     Indication: Product used for unknown indication
  11. SOFTOVAC [PLANTAGO OVATA;SENNA SPP. EXTRACT] [Concomitant]
     Indication: Product used for unknown indication
  12. DOLO 650 [Concomitant]
     Indication: Product used for unknown indication

REACTIONS (2)
  - Bone marrow myelogram abnormal [Recovered/Resolved]
  - Off label use [Unknown]

NARRATIVE: CASE EVENT DATE: 20250520
